FAERS Safety Report 11397783 (Version 4)
Quarter: 2015Q4

REPORT INFORMATION
  Report Type: Spontaneous
  Country: US (occurrence: US)
  Receive Date: 20150819
  Receipt Date: 20151209
  Transmission Date: 20160304
  Serious: Yes (Hospitalization, Disabling, Other)
  Sender: FDA-Public Use
  Company Number: US-009507513-1204USA04175

PATIENT
  Sex: Female
  Weight: 58.96 kg

DRUGS (2)
  1. FOSAMAX [Suspect]
     Active Substance: ALENDRONATE SODIUM
     Indication: BONE DENSITY DECREASED
     Dosage: 70 MG, QW
     Route: 048
     Dates: start: 2003, end: 201004
  2. ALENDRONATE SODIUM. [Suspect]
     Active Substance: ALENDRONATE SODIUM
     Indication: BONE DENSITY DECREASED
     Dosage: 70 MG, QW
     Route: 048
     Dates: start: 200812, end: 201009

REACTIONS (37)
  - Fall [Recovering/Resolving]
  - Back pain [Unknown]
  - Gastrooesophageal reflux disease [Unknown]
  - Spinal compression fracture [Unknown]
  - Upper respiratory tract infection [Unknown]
  - Hand fracture [Unknown]
  - Iron deficiency anaemia [Unknown]
  - Tendonitis [Unknown]
  - Glaucoma [Unknown]
  - Emphysema [Unknown]
  - Lung disorder [Unknown]
  - Bone disorder [Unknown]
  - Bunion operation [Unknown]
  - Osteoarthritis [Unknown]
  - Trigeminal neuralgia [Unknown]
  - Benign breast neoplasm [Unknown]
  - Cataract nuclear [Unknown]
  - Osteomyelitis [Unknown]
  - Hiatus hernia [Unknown]
  - Osteoporosis [Unknown]
  - Epiglottitis [Unknown]
  - Pulmonary mass [Unknown]
  - Asthma [Unknown]
  - Femur fracture [Recovering/Resolving]
  - Chronic obstructive pulmonary disease [Not Recovered/Not Resolved]
  - Mastoiditis [Unknown]
  - Haemorrhoid operation [Unknown]
  - Ear infection [Unknown]
  - Stress fracture [Unknown]
  - Lung infection [Unknown]
  - Rectocele [Unknown]
  - Anaemia postoperative [Unknown]
  - Seizure [Unknown]
  - Facial pain [Unknown]
  - Thalassaemia beta [Unknown]
  - Hypertension [Unknown]
  - Nausea [Not Recovered/Not Resolved]

NARRATIVE: CASE EVENT DATE: 20030820
